FAERS Safety Report 17057788 (Version 1)
Quarter: 2019Q4

REPORT INFORMATION
  Report Type: Spontaneous
  Country: US (occurrence: US)
  Receive Date: 20191022
  Receipt Date: 20191022
  Transmission Date: 20200122
  Serious: Yes (Hospitalization)
  Sender: FDA-Public Use
  Company Number: None

PATIENT
  Age: 63 Year
  Sex: Male
  Weight: 74.48 kg

DRUGS (1)
  1. DESVENLAFAXINE SUCCINATE. [Suspect]
     Active Substance: DESVENLAFAXINE SUCCINATE
     Indication: MAJOR DEPRESSION
     Route: 048

REACTIONS (8)
  - Product substitution issue [None]
  - Nausea [None]
  - Hypersensitivity [None]
  - Vomiting [None]
  - Flushing [None]
  - Palpitations [None]
  - Chest pain [None]
  - Cardiac disorder [None]
